FAERS Safety Report 13123766 (Version 1)
Quarter: 2017Q1

REPORT INFORMATION
  Report Type: Report from Study
  Country: US (occurrence: US)
  Receive Date: 20170117
  Receipt Date: 20170117
  Transmission Date: 20170428
  Serious: Yes (Death, Other)
  Sender: FDA-Public Use
  Company Number: US-AMGEN-USASL2017005784

PATIENT
  Age: 93 Year
  Sex: Male

DRUGS (2)
  1. PROLIA [Suspect]
     Active Substance: DENOSUMAB
     Indication: OSTEOPOROSIS
     Dosage: UNK
     Route: 065
     Dates: end: 20150825
  2. PROLIA [Suspect]
     Active Substance: DENOSUMAB
     Indication: SCOLIOSIS

REACTIONS (2)
  - Off label use [Unknown]
  - Death [Fatal]
